FAERS Safety Report 8828543 (Version 1)
Quarter: 2012Q4

REPORT INFORMATION
  Report Type: 
  Country: US (occurrence: US)
  Receive Date: 20121005
  Receipt Date: 20121005
  Transmission Date: 20130627
  Serious: No
  Sender: FDA-Public Use
  Company Number: US-B.I. PHARMACEUTICALS,INC./RIDGEFIELD-2012-BP-23613BP

PATIENT
  Age: 61 None
  Sex: Female
  Weight: 73 kg

DRUGS (6)
  1. SPIRIVA [Suspect]
     Indication: CHRONIC OBSTRUCTIVE PULMONARY DISEASE
     Dosage: 18 mcg
     Route: 055
     Dates: start: 2006
  2. SYMBICORT [Concomitant]
     Indication: CHRONIC OBSTRUCTIVE PULMONARY DISEASE
     Route: 055
  3. CELEBREX [Concomitant]
     Indication: FIBROMYALGIA
     Dosage: 200 mg
     Route: 048
  4. PRILOSEC [Concomitant]
     Indication: DYSPEPSIA
     Route: 048
  5. SINGULAIR [Concomitant]
     Indication: CHRONIC OBSTRUCTIVE PULMONARY DISEASE
     Route: 048
  6. LUNESTA [Concomitant]
     Indication: INSOMNIA
     Route: 048

REACTIONS (4)
  - Dyspnoea [Not Recovered/Not Resolved]
  - Bronchitis [Recovered/Resolved]
  - Chest discomfort [Not Recovered/Not Resolved]
  - Dyspepsia [Recovered/Resolved]
